FAERS Safety Report 7884329-0 (Version None)
Quarter: 2011Q4

REPORT INFORMATION
  Report Type: 
  Country: None (occurrence: None)
  Receive Date: 20111102
  Receipt Date: 20111025
  Transmission Date: 20120403
  Serious: Yes (Life-Threatening, Other)
  Sender: FDA-Public Use
  Company Number: NL-ROCHE-1008421

PATIENT
  Sex: Male

DRUGS (5)
  1. METOPROLOL TARTRATE [Concomitant]
     Dosage: DISCONTINUED
  2. ENALAPRIL MALEATE [Suspect]
     Indication: PRODUCT USED FOR UNKNOWN INDICATION
  3. DUSPATAL RETARD [Concomitant]
     Dosage: DISCONTINUED
  4. ASPIRIN [Concomitant]
  5. ACTIVASE [Suspect]
     Indication: CEREBRAL INFARCTION
     Dosage: 50MG+50ML SOLVENS
     Dates: start: 20100110

REACTIONS (2)
  - RESPIRATORY FAILURE [None]
  - ANGIOEDEMA [None]
